FAERS Safety Report 19456250 (Version 1)
Quarter: 2021Q2

REPORT INFORMATION
  Report Type: Spontaneous
  Country: US (occurrence: US)
  Receive Date: 20210622
  Receipt Date: 20210622
  Transmission Date: 20210717
  Serious: No
  Sender: FDA-Public Use
  Company Number: None

PATIENT
  Age: 62 Year
  Sex: Female
  Weight: 64.35 kg

DRUGS (1)
  1. ALEVEX [Suspect]
     Active Substance: CAMPHOR (SYNTHETIC)\MENTHOL
     Indication: ARTHRALGIA
     Route: 061
     Dates: start: 20210621

REACTIONS (3)
  - Product formulation issue [None]
  - Product use complaint [None]
  - Product packaging confusion [None]

NARRATIVE: CASE EVENT DATE: 20210621
